FAERS Safety Report 11076011 (Version 3)
Quarter: 2015Q2

REPORT INFORMATION
  Report Type: Spontaneous
  Country: RO (occurrence: RO)
  Receive Date: 20150429
  Receipt Date: 20150507
  Transmission Date: 20150821
  Serious: Yes (Disabling)
  Sender: FDA-Public Use
  Company Number: RO-PFIZER INC-2015143202

PATIENT
  Age: 60 Year
  Sex: Female
  Weight: 73 kg

DRUGS (5)
  1. EUTHYROX [Concomitant]
     Active Substance: LEVOTHYROXINE SODIUM
     Dosage: 150 MG, UNK
     Route: 048
     Dates: start: 20050101
  2. TRIMETAZIDINA [Concomitant]
     Indication: CARDIAC DISORDER
     Dosage: 35 MG, UNK
     Route: 048
     Dates: start: 20050101
  3. TERTENSIF [Concomitant]
     Indication: DIURETIC THERAPY
     Dosage: 1.5 MG, UNK
     Route: 048
     Dates: start: 20050101
  4. ENAP /00574902/ [Concomitant]
     Dosage: 10 MG, UNK
     Route: 048
     Dates: start: 20050101
  5. SUTENT [Suspect]
     Active Substance: SUNITINIB MALATE
     Indication: RENAL CANCER METASTATIC
     Dosage: 50 MG, CYCLIC, 28 DAYS ON WITH 14 DAYS PAUSE
     Route: 048
     Dates: start: 20100801

REACTIONS (7)
  - Pallor [Recovered/Resolved with Sequelae]
  - Constipation [Recovered/Resolved with Sequelae]
  - Vomiting [Recovered/Resolved with Sequelae]
  - Diarrhoea [Recovered/Resolved with Sequelae]
  - Muscle spasms [Recovered/Resolved with Sequelae]
  - Abdominal pain [Recovered/Resolved with Sequelae]
  - Nausea [Recovered/Resolved with Sequelae]

NARRATIVE: CASE EVENT DATE: 201008
